APPROVED DRUG PRODUCT: DOXYCYCLINE
Active Ingredient: DOXYCYCLINE
Strength: EQ 50MG BASE
Dosage Form/Route: TABLET;ORAL
Application: A065285 | Product #001 | TE Code: AB
Applicant: LANNETT CO INC
Approved: Dec 8, 2005 | RLD: No | RS: No | Type: RX